FAERS Safety Report 18795309 (Version 1)
Quarter: 2021Q1

REPORT INFORMATION
  Report Type: Spontaneous
  Country: JP (occurrence: JP)
  Receive Date: 20210127
  Receipt Date: 20210127
  Transmission Date: 20210419
  Serious: Yes (Hospitalization)
  Sender: FDA-Public Use
  Company Number: JP-DSJP-DSJ-2021-102274

PATIENT
  Age: 7 Decade
  Sex: Male

DRUGS (2)
  1. ENHERTU [Suspect]
     Active Substance: FAM-TRASTUZUMAB DERUXTECAN-NXKI
     Indication: GASTRIC CANCER
     Dosage: 6.4 MG/KG, ONCE EVERY 3 WK
     Route: 041
     Dates: start: 20201109, end: 20201221
  2. ANTIBACTERIAL DRUG [Suspect]
     Active Substance: UNSPECIFIED INGREDIENT
     Indication: ABSCESS
     Dosage: UNK
     Route: 065

REACTIONS (1)
  - Pneumonia fungal [Not Recovered/Not Resolved]
